FAERS Safety Report 18552969 (Version 2)
Quarter: 2020Q4

REPORT INFORMATION
  Report Type: Report from Study
  Country: None (occurrence: US)
  Receive Date: 20201127
  Receipt Date: 20201230
  Transmission Date: 20210114
  Serious: Yes (Hospitalization, Other)
  Sender: FDA-Public Use
  Company Number: US-ABBVIE-20K-163-3666840-00

PATIENT
  Sex: Male

DRUGS (1)
  1. VENCLEXTA [Suspect]
     Active Substance: VENETOCLAX
     Indication: ACUTE MYELOID LEUKAEMIA
     Dosage: TAKING 100MG FOR 21 DAYS ON, 7 DAYS OFF
     Route: 048
     Dates: start: 202004

REACTIONS (3)
  - Pneumonia [Unknown]
  - White blood cell count decreased [Unknown]
  - Red blood cell abnormality [Recovering/Resolving]

NARRATIVE: CASE EVENT DATE: 2020
